FAERS Safety Report 9379040 (Version 1)
Quarter: 2013Q3

REPORT INFORMATION
  Report Type: Report from Study
  Country: US (occurrence: US)
  Receive Date: 20130702
  Receipt Date: 20130702
  Transmission Date: 20140515
  Serious: Yes (Hospitalization)
  Sender: FDA-Public Use
  Company Number: US-BRISTOL-MYERS SQUIBB COMPANY-19034834

PATIENT
  Age: 56 Year
  Sex: Female

DRUGS (5)
  1. TAXOL [Suspect]
     Indication: HEAD AND NECK CANCER METASTATIC
     Dosage: LAST PROTOCOL TREATMENT DATE:23MAY2013
     Route: 065
     Dates: start: 20120913
  2. CARBOPLATIN [Suspect]
     Indication: HEAD AND NECK CANCER METASTATIC
     Dosage: LAST PROTOCOL TREATMENT DATE:23MAY2013
     Route: 065
     Dates: start: 20120913
  3. TEMSIROLIMUS [Suspect]
     Indication: HEAD AND NECK CANCER METASTATIC
     Route: 065
     Dates: start: 20121213
  4. OXYCODONE HCL [Suspect]
     Dosage: LAST PROTOCOL TREATMENT DATE:23MAY2013
  5. BENADRYL [Suspect]
     Dosage: LAST PROTOCOL TREATMENT DATE:23MAY2013
     Route: 065

REACTIONS (1)
  - Mental status changes [Recovered/Resolved]
